FAERS Safety Report 4973230-8 (Version None)
Quarter: 2006Q2

REPORT INFORMATION
  Report Type: 
  Country: None (occurrence: None)
  Receive Date: 20060414
  Receipt Date: 20050622
  Transmission Date: 20061013
  Serious: Yes (Death, Hospitalization)
  Sender: FDA-Public Use
  Company Number: US-MERCK-0506USA03323

PATIENT
  Age: 78 Year
  Sex: Female
  Weight: 45 kg

DRUGS (11)
  1. VIOXX [Suspect]
     Indication: ARTHRITIS
     Route: 048
     Dates: start: 20030319, end: 20040301
  2. CIPRO [Concomitant]
     Route: 065
  3. CELEXA [Concomitant]
     Route: 065
  4. [THERAPY UNSPECIFIED] [Concomitant]
     Route: 065
  5. FOSAMAX [Concomitant]
     Route: 048
  6. NORVASC [Concomitant]
     Route: 048
  7. PLAVIX [Concomitant]
     Route: 048
  8. ESTRACE [Concomitant]
     Route: 048
  9. PROVERA [Concomitant]
     Route: 065
  10. SYNTHROID [Concomitant]
     Route: 048
  11. TYLENOL W/ CODEINE NO. 4 [Concomitant]
     Route: 065

REACTIONS (16)
  - ABDOMINAL PAIN [None]
  - ARTHRALGIA [None]
  - BACK PAIN [None]
  - BLINDNESS [None]
  - CEREBROVASCULAR ACCIDENT [None]
  - CLOSTRIDIUM COLITIS [None]
  - COCCYDYNIA [None]
  - COLITIS [None]
  - DEPRESSION [None]
  - GASTRITIS [None]
  - HAEMORRHAGIC STROKE [None]
  - HEMIPARESIS [None]
  - MUSCULOSKELETAL PAIN [None]
  - PELVIC PAIN [None]
  - PUBIC RAMI FRACTURE [None]
  - RADIUS FRACTURE [None]
